FAERS Safety Report 6240237-2 (Version None)
Quarter: 2009Q2

REPORT INFORMATION
  Report Type: 
  Country: None (occurrence: None)
  Receive Date: 20090623
  Receipt Date: 20080428
  Transmission Date: 20091009
  Serious: No
  Sender: FDA-Public Use
  Company Number: US-ASTRAZENECA-2008UW08634

PATIENT
  Age: 89 Year
  Sex: Male
  Weight: 66.2 kg

DRUGS (2)
  1. PULMICORT RESPULES [Suspect]
     Route: 055
     Dates: start: 20080101
  2. XOPENEX [Concomitant]

REACTIONS (1)
  - RHINORRHOEA [None]
